FAERS Safety Report 4625203-2 (Version None)
Quarter: 2005Q2

REPORT INFORMATION
  Report Type: 
  Country: None (occurrence: None)
  Receive Date: 20050401
  Receipt Date: 20040621
  Transmission Date: 20051028
  Serious: Yes (Hospitalization)
  Sender: FDA-Public Use
  Company Number: US-ROCHE-374492

PATIENT
  Age: 75 Year
  Sex: Male

DRUGS (6)
  1. CAPECITABINE [Suspect]
     Indication: RECTAL CANCER
     Dosage: TWICE DAILY MONDAY THROUGH FRIDAY FOR SIX WEEKS
     Route: 048
     Dates: start: 20040407, end: 20040514
  2. CAPECITABINE [Suspect]
     Dosage: 06-19 DEC 2004: 6TH CYCLE OF POST-OPERATIVE TREATMENT.
     Route: 048
     Dates: end: 20041219
  3. LOMOTIL [Concomitant]
  4. OXYCONTIN [Concomitant]
     Dosage: PRN.
  5. COMPAZINE [Concomitant]
  6. TYLENOL (CAPLET) [Concomitant]

REACTIONS (7)
  - CONSTIPATION [None]
  - DEHYDRATION [None]
  - DIARRHOEA [None]
  - INTESTINAL OBSTRUCTION [None]
  - RENAL FAILURE [None]
  - SMALL INTESTINAL OBSTRUCTION [None]
  - URINARY TRACT INFECTION [None]
